FAERS Safety Report 9459851 (Version 1)
Quarter: 2013Q3

REPORT INFORMATION
  Report Type: Report from Study
  Country: AU (occurrence: AU)
  Receive Date: 20130815
  Receipt Date: 20130815
  Transmission Date: 20140515
  Serious: Yes (Other)
  Sender: FDA-Public Use
  Company Number: AU-ROCHE-1189831

PATIENT
  Age: 41 Year
  Sex: Female

DRUGS (6)
  1. BEVACIZUMAB [Suspect]
     Indication: COLORECTAL CANCER
     Route: 065
  2. CAPECITABINE [Suspect]
     Indication: COLORECTAL CANCER
     Route: 065
  3. FOLINIC ACID [Concomitant]
     Indication: COLORECTAL CANCER
     Route: 065
  4. FLUOROURACIL [Concomitant]
     Indication: COLORECTAL CANCER
     Route: 065
  5. IRINOTECAN [Concomitant]
     Indication: COLORECTAL CANCER
     Route: 065
  6. OXALIPLATIN [Concomitant]

REACTIONS (4)
  - Pelvic mass [Unknown]
  - Jaundice cholestatic [Unknown]
  - Febrile neutropenia [Unknown]
  - Intestinal obstruction [Unknown]
